FAERS Safety Report 16500607 (Version 3)
Quarter: 2020Q1

REPORT INFORMATION
  Report Type: Report from Study
  Country: JP (occurrence: JP)
  Receive Date: 20190701
  Receipt Date: 20200205
  Transmission Date: 20200409
  Serious: Yes (Hospitalization)
  Sender: FDA-Public Use
  Company Number: JP-ROCHE-2343823

PATIENT
  Age: 47 Year
  Sex: Female
  Weight: 56.1 kg

DRUGS (12)
  1. CARBOPLATIN. [Suspect]
     Active Substance: CARBOPLATIN
     Indication: OVARIAN CANCER
     Dosage: DATE OF MOST RECENT DOSE (690 MG) OF CARBOPLATIN PRIOR TO AE AND SAE ONSET IS 23/OCT/2018?FIRST DOSE
     Route: 042
     Dates: start: 20180703
  2. REBAMIPIDE [Concomitant]
     Active Substance: REBAMIPIDE
     Indication: GASTROENTERITIS
     Route: 065
     Dates: start: 20190528
  3. PACLITAXEL. [Suspect]
     Active Substance: PACLITAXEL
     Indication: OVARIAN CANCER
     Dosage: DATE OF MOST RECENT DOSE (268 MG) OF PACLITAXEL PRIOR TO AE AND SAE ONSET IS 23/OCT/2018?PACLITAXEL
     Route: 042
     Dates: start: 20180703
  4. FEXOFENADINE HYDROCHLORIDE. [Concomitant]
     Active Substance: FEXOFENADINE HYDROCHLORIDE
     Indication: RASH
     Route: 065
     Dates: start: 20190527
  5. LOXOPROFEN [Concomitant]
     Active Substance: LOXOPROFEN
     Indication: HEADACHE
     Route: 065
     Dates: start: 20190609, end: 20190609
  6. BEVACIZUMAB. [Suspect]
     Active Substance: BEVACIZUMAB
     Indication: OVARIAN CANCER
     Dosage: DATE OF MOST RECENT DOSE (766.5 MG) OF BEVACIZUMAB PRIOR TO AE AND SAE ONSET IS 21/JUN/2019?BEVACIZU
     Route: 042
     Dates: start: 20180731
  7. PANTETHINE [Concomitant]
     Active Substance: PANTETHINE
     Indication: CONSTIPATION PROPHYLAXIS
     Route: 065
     Dates: start: 20180731
  8. LYRICA [Concomitant]
     Active Substance: PREGABALIN
     Indication: PERIPHERAL SENSORY NEUROPATHY
     Route: 065
     Dates: start: 20190414
  9. ATEZOLIZUMAB. [Suspect]
     Active Substance: ATEZOLIZUMAB
     Indication: OVARIAN CANCER
     Dosage: DATE OF MOST RECENT DOSE IV INFUSION ATEZOLIZUMAB ON DAY 1 OF EACH 21-DAY CYCLE PRIOR TO AE AND SAE
     Route: 042
     Dates: start: 20180703
  10. LOXOPROFEN [Concomitant]
     Active Substance: LOXOPROFEN
     Indication: GASTROENTERITIS
     Route: 065
     Dates: start: 20190528, end: 20190529
  11. MAGNESIUM OXIDE. [Concomitant]
     Active Substance: MAGNESIUM OXIDE
     Indication: CONSTIPATION PROPHYLAXIS
     Route: 065
     Dates: start: 20180731
  12. METHYCOBAL [Concomitant]
     Active Substance: METHYLCOBALAMIN
     Indication: PERIPHERAL SENSORY NEUROPATHY
     Route: 065
     Dates: start: 20181228

REACTIONS (1)
  - Ileus [Recovered/Resolved]

NARRATIVE: CASE EVENT DATE: 20190623
